FAERS Safety Report 6809487-8 (Version None)
Quarter: 2010Q2

REPORT INFORMATION
  Report Type: 
  Country: None (occurrence: None)
  Receive Date: 20100630
  Receipt Date: 20100623
  Transmission Date: 20101027
  Serious: Yes (Death, Hospitalization)
  Sender: FDA-Public Use
  Company Number: ES-BRISTOL-MYERS SQUIBB COMPANY-15134208

PATIENT
  Age: 80 Year
  Sex: Male
  Weight: 61 kg

DRUGS (5)
  1. ERBITUX [Suspect]
     Indication: TONSIL CANCER
     Dosage: ERBITUX  5MG/ML
     Route: 042
     Dates: start: 20100219, end: 20100330
  2. AMLODIPINE [Concomitant]
  3. OMEPRAZOLE [Concomitant]
  4. ADIRO [Concomitant]
  5. PRAVASTATIN [Concomitant]

REACTIONS (1)
  - DIARRHOEA [None]
